FAERS Safety Report 8975195 (Version 1)
Quarter: 2012Q4

REPORT INFORMATION
  Report Type: 
  Country: US (occurrence: US)
  Receive Date: 20121219
  Receipt Date: 20121219
  Transmission Date: 20130627
  Serious: No
  Sender: FDA-Public Use
  Company Number: US-AMGEN-USASP2012073721

PATIENT
  Age: 61 Year
  Sex: Female

DRUGS (4)
  1. PROLIA [Suspect]
     Indication: OSTEOPOROSIS POSTMENOPAUSAL
     Dosage: UNK
     Route: 030
     Dates: start: 20121105
  2. PRILOSEC [Concomitant]
     Indication: GASTROOESOPHAGEAL REFLUX DISEASE
     Dosage: UNK UNK, qd
  3. MULTIVITAMINS [Concomitant]
     Dosage: UNK
  4. TUMS [Concomitant]
     Dosage: UNK

REACTIONS (4)
  - Eye irritation [Unknown]
  - Dry eye [Unknown]
  - Gastrooesophageal reflux disease [Recovering/Resolving]
  - Incorrect route of drug administration [Unknown]
